FAERS Safety Report 6462976-0 (Version None)
Quarter: 2009Q4

REPORT INFORMATION
  Report Type: 
  Country: None (occurrence: None)
  Receive Date: 20091130
  Receipt Date: 20091130
  Transmission Date: 20100525
  Serious: Yes (Hospitalization, Other)
  Sender: FDA-Public Use
  Company Number: US-ABBOTT-09P-163-0609353-00

PATIENT
  Sex: Female
  Weight: 70.37 kg

DRUGS (5)
  1. HUMIRA [Suspect]
     Indication: RHEUMATOID ARTHRITIS
     Route: 058
     Dates: start: 20080101, end: 20090601
  2. HUMIRA [Suspect]
     Route: 058
     Dates: start: 20090701, end: 20090701
  3. METHOTREXATE [Concomitant]
     Indication: RHEUMATOID ARTHRITIS
  4. PREDNISONE [Concomitant]
     Indication: RHEUMATOID ARTHRITIS
     Route: 048
     Dates: end: 20090901
  5. PREDNISONE [Concomitant]
     Route: 048
     Dates: start: 20090901

REACTIONS (5)
  - ARTHRALGIA [None]
  - INFLAMMATION [None]
  - LIMB DEFORMITY [None]
  - PAIN [None]
  - SWELLING [None]
